FAERS Safety Report 10300694 (Version 4)
Quarter: 2014Q3

REPORT INFORMATION
  Report Type: Report from Study
  Country: US (occurrence: US)
  Receive Date: 20140714
  Receipt Date: 20140919
  Transmission Date: 20150326
  Serious: Yes (Hospitalization)
  Sender: FDA-Public Use
  Company Number: US-BIOGENIDEC-2014BI066747

PATIENT
  Age: 52 Year
  Sex: Female
  Weight: 61 kg

DRUGS (8)
  1. TYLENOL [Concomitant]
     Active Substance: ACETAMINOPHEN
  2. NORVASC [Concomitant]
     Active Substance: AMLODIPINE BESYLATE
  3. XANAX [Concomitant]
     Active Substance: ALPRAZOLAM
  4. AVONEX [Suspect]
     Active Substance: INTERFERON BETA-1A
     Indication: MULTIPLE SCLEROSIS
     Route: 030
     Dates: start: 20121103, end: 20140628
  5. AMBIEN [Concomitant]
     Active Substance: ZOLPIDEM TARTRATE
  6. VITAMIN D3 [Concomitant]
     Active Substance: CHOLECALCIFEROL
  7. PROZAC [Concomitant]
     Active Substance: FLUOXETINE HYDROCHLORIDE
  8. LISINOPRIL. [Concomitant]
     Active Substance: LISINOPRIL

REACTIONS (8)
  - Drug ineffective [Unknown]
  - Vision blurred [Not Recovered/Not Resolved]
  - Hemiparesis [Unknown]
  - Multiple sclerosis [Not Recovered/Not Resolved]
  - Eye pain [Not Recovered/Not Resolved]
  - Balance disorder [Unknown]
  - Speech disorder [Not Recovered/Not Resolved]
  - Amnesia [Not Recovered/Not Resolved]

NARRATIVE: CASE EVENT DATE: 201403
